FAERS Safety Report 24260273 (Version 1)
Quarter: 2024Q3

REPORT INFORMATION
  Report Type: Spontaneous
  Country: US (occurrence: US)
  Receive Date: 20240828
  Receipt Date: 20240828
  Transmission Date: 20241017
  Serious: No
  Sender: SANOFI AVENTIS
  Company Number: US-SANOFI-02186342

PATIENT
  Age: 52 Year
  Sex: Male

DRUGS (1)
  1. APIDRA SOLOSTAR [Suspect]
     Active Substance: INSULIN GLULISINE
     Indication: Type 2 diabetes mellitus
     Dosage: 20 TO 30 UNITS EVERY MORNING, AFTERNOON, AND EVENING DEPENDING ON BLOOD SUGAR LEVEL

REACTIONS (2)
  - Product storage error [Unknown]
  - Intentional product misuse [Unknown]
